FAERS Safety Report 19840007 (Version 4)
Quarter: 2022Q1

REPORT INFORMATION
  Report Type: Report from Study
  Country: US (occurrence: US)
  Receive Date: 20210916
  Receipt Date: 20220211
  Transmission Date: 20220423
  Serious: No
  Sender: FDA-Public Use
  Company Number: NVSC2021US209759

PATIENT
  Sex: Female

DRUGS (2)
  1. ENTRESTO [Suspect]
     Active Substance: SACUBITRIL\VALSARTAN
     Indication: Product used for unknown indication
     Dosage: UNK UNK, UNKNOWN
     Route: 065
  2. ENTRESTO [Suspect]
     Active Substance: SACUBITRIL\VALSARTAN
     Dosage: 200 MG(97/103 MG)
     Route: 065

REACTIONS (7)
  - Fear [Unknown]
  - Weight increased [Unknown]
  - Anxiety [Unknown]
  - Temperature intolerance [Unknown]
  - Product availability issue [Unknown]
  - Hot flush [Unknown]
  - Depression [Unknown]
